FAERS Safety Report 9287620 (Version 33)
Quarter: 2014Q1

REPORT INFORMATION
  Report Type: Report from Study
  Country: CA (occurrence: CA)
  Receive Date: 20130514
  Receipt Date: 20140219
  Transmission Date: 20141002
  Serious: Yes (Hospitalization, Other)
  Sender: FDA-Public Use
  Company Number: CA-ROCHE-1213240

PATIENT
  Age: 57 Year
  Sex: Female
  Weight: 66 kg

DRUGS (10)
  1. AVASTIN [Suspect]
     Indication: GLIOBLASTOMA
     Route: 042
     Dates: start: 20130327
  2. AVASTIN [Suspect]
     Route: 042
     Dates: start: 20130510, end: 20130605
  3. AVASTIN [Suspect]
     Route: 042
     Dates: start: 20130917
  4. AVASTIN [Suspect]
     Route: 042
     Dates: start: 20131001
  5. AVASTIN [Suspect]
     Route: 042
     Dates: end: 20140121
  6. DILANTIN [Suspect]
     Indication: CONVULSION PROPHYLAXIS
     Dosage: 330 MG AND 400 MG DAILY
     Route: 065
  7. DILANTIN [Suspect]
     Route: 065
  8. ETOPOSIDE [Suspect]
     Indication: PRODUCT USED FOR UNKNOWN INDICATION
     Dosage: 50 MG X 2 FOR 21 DAYS 7 DAYS OFF
     Route: 048
     Dates: start: 20131212
  9. DECADRON [Concomitant]
     Dosage: INCREASED TO 6MG
     Route: 065
     Dates: end: 20130816
  10. DECADRON [Concomitant]
     Dosage: RESTARTED
     Route: 065
     Dates: start: 20130320

REACTIONS (56)
  - Headache [Unknown]
  - Partial seizures [Unknown]
  - Convulsion [Unknown]
  - Gait disturbance [Not Recovered/Not Resolved]
  - Convulsion [Not Recovered/Not Resolved]
  - Convulsion [Not Recovered/Not Resolved]
  - Fall [Not Recovered/Not Resolved]
  - Muscular weakness [Not Recovered/Not Resolved]
  - Gait disturbance [Not Recovered/Not Resolved]
  - Mobility decreased [Not Recovered/Not Resolved]
  - Hypotension [Not Recovered/Not Resolved]
  - Hypothyroidism [Not Recovered/Not Resolved]
  - Disease progression [Not Recovered/Not Resolved]
  - Sinus congestion [Not Recovered/Not Resolved]
  - Glossodynia [Recovered/Resolved]
  - Weight increased [Unknown]
  - Dysphonia [Not Recovered/Not Resolved]
  - Stress [Unknown]
  - Gingival pain [Recovered/Resolved]
  - Feeling cold [Unknown]
  - Flatulence [Unknown]
  - Myalgia [Unknown]
  - Abdominal pain [Unknown]
  - Bruxism [Unknown]
  - Thermal burn [Recovering/Resolving]
  - Blister [Recovering/Resolving]
  - Anticonvulsant drug level increased [Unknown]
  - Swelling [Unknown]
  - Muscle twitching [Recovered/Resolved]
  - Cough [Not Recovered/Not Resolved]
  - Memory impairment [Not Recovered/Not Resolved]
  - Fatigue [Unknown]
  - Feeling cold [Recovered/Resolved]
  - Contusion [Not Recovered/Not Resolved]
  - Somnolence [Not Recovered/Not Resolved]
  - Dyspnoea [Not Recovered/Not Resolved]
  - Dysphonia [Not Recovered/Not Resolved]
  - Fatigue [Not Recovered/Not Resolved]
  - Infusion related reaction [Recovered/Resolved]
  - Diarrhoea [Recovered/Resolved]
  - Decreased appetite [Not Recovered/Not Resolved]
  - Rhinorrhoea [Recovered/Resolved]
  - Balance disorder [Recovered/Resolved]
  - Diarrhoea [Recovered/Resolved]
  - Abdominal discomfort [Not Recovered/Not Resolved]
  - Nausea [Not Recovered/Not Resolved]
  - Reflexes abnormal [Unknown]
  - Nasopharyngitis [Recovered/Resolved]
  - Cough [Not Recovered/Not Resolved]
  - Hemiparesis [Not Recovered/Not Resolved]
  - Muscular weakness [Recovering/Resolving]
  - Drug ineffective [Unknown]
  - Neoplasm [Unknown]
  - Fatigue [Not Recovered/Not Resolved]
  - Diarrhoea [Not Recovered/Not Resolved]
  - Blood test abnormal [Unknown]
